FAERS Safety Report 16321978 (Version 3)
Quarter: 2019Q2

REPORT INFORMATION
  Report Type: Spontaneous
  Country: US (occurrence: US)
  Receive Date: 20190516
  Receipt Date: 20190620
  Transmission Date: 20190711
  Serious: Yes (Hospitalization, Other)
  Sender: FDA-Public Use
  Company Number: US-VERTEX PHARMACEUTICALS-2019-004320

PATIENT
  Sex: Male
  Weight: 73 kg

DRUGS (12)
  1. VENTOLIN [Concomitant]
     Active Substance: ALBUTEROL SULFATE
     Dosage: 90 MICROGRAM
  2. ALBUTEROL SULFATE. [Concomitant]
     Active Substance: ALBUTEROL SULFATE
     Dosage: .63 MG
  3. XARELTO [Concomitant]
     Active Substance: RIVAROXABAN
     Dosage: 10 MG
  4. SODIUM CHLORIDE. [Concomitant]
     Active Substance: SODIUM CHLORIDE
     Dosage: 0.9%
  5. COLISTIN SULFATE [Concomitant]
     Active Substance: COLISTIN SULFATE
     Dosage: UNK
  6. PULMOZYME [Concomitant]
     Active Substance: DORNASE ALFA
     Dosage: 1 MG
  7. SYMDEKO [Suspect]
     Active Substance: IVACAFTOR\TEZACAFTOR
     Indication: CYSTIC FIBROSIS
     Dosage: UNK, BID
     Route: 048
     Dates: start: 201804
  8. CAYSTON [Concomitant]
     Active Substance: AZTREONAM
     Dosage: 75 MG
  9. PREDNISONE. [Concomitant]
     Active Substance: PREDNISONE
     Dosage: 10 MG
  10. SINGULAIR [Concomitant]
     Active Substance: MONTELUKAST SODIUM
     Dosage: 10 MG
  11. CREON [Concomitant]
     Active Substance: PANCRELIPASE AMYLASE\PANCRELIPASE LIPASE\PANCRELIPASE PROTEASE
     Dosage: UNK
  12. SPIRIVA [Concomitant]
     Active Substance: TIOTROPIUM BROMIDE MONOHYDRATE
     Dosage: 2.5 MICROGRAM
     Route: 055

REACTIONS (3)
  - Infective pulmonary exacerbation of cystic fibrosis [Unknown]
  - General physical health deterioration [Unknown]
  - Hospitalisation [Unknown]

NARRATIVE: CASE EVENT DATE: 2018
